FAERS Safety Report 12555981 (Version 2)
Quarter: 2016Q3

REPORT INFORMATION
  Report Type: Spontaneous
  Country: JP (occurrence: JP)
  Receive Date: 20160714
  Receipt Date: 20160726
  Transmission Date: 20161109
  Serious: Yes (Hospitalization, Other)
  Sender: FDA-Public Use
  Company Number: JP-JNJFOC-20160707297

PATIENT
  Age: 5 Decade
  Sex: Male

DRUGS (4)
  1. DUROTEP MT [Suspect]
     Active Substance: FENTANYL
     Indication: PAIN
     Dosage: 4.0 MG PER DAY
     Route: 062
  2. DUROTEP MT [Suspect]
     Active Substance: FENTANYL
     Indication: PAIN
     Dosage: 5.0 MG PER DAY
     Route: 062
  3. FENTANYL. [Suspect]
     Active Substance: FENTANYL
     Indication: PAIN
     Dosage: 5.0 MG PER DAY
     Route: 062
  4. FENTANYL. [Suspect]
     Active Substance: FENTANYL
     Indication: PAIN
     Dosage: 4.0 MG PER DAY
     Route: 062

REACTIONS (9)
  - Agitation [Recovered/Resolved]
  - Tremor [Recovered/Resolved]
  - Application site dryness [Recovered/Resolved]
  - Hyperhidrosis [Recovered/Resolved]
  - Salivary hypersecretion [Recovered/Resolved]
  - Chills [Recovered/Resolved]
  - Irritability [Recovered/Resolved]
  - Withdrawal syndrome [Recovered/Resolved]
  - Pain in extremity [Recovered/Resolved]
